FAERS Safety Report 5413880-8 (Version None)
Quarter: 2007Q3

REPORT INFORMATION
  Report Type: 
  Country: None (occurrence: None)
  Receive Date: 20070810
  Receipt Date: 20070807
  Transmission Date: 20080115
  Serious: Yes (Death)
  Sender: FDA-Public Use
  Company Number: 167-C5013-07080398

PATIENT
  Age: 42 Year
  Sex: Male

DRUGS (2)
  1. CC-5013 (LENALIDOMIDE) (CAPSULES) [Suspect]
     Indication: MULTIPLE MYELOMA
     Dosage: ORAL
     Route: 048
  2. DEXAMETHASONE TAB [Suspect]
     Indication: MULTIPLE MYELOMA

REACTIONS (1)
  - DEATH [None]
